FAERS Safety Report 20468544 (Version 1)
Quarter: 2022Q1

REPORT INFORMATION
  Report Type: Spontaneous
  Country: US (occurrence: None)
  Receive Date: 20220212
  Receipt Date: 20220212
  Transmission Date: 20220423
  Serious: Yes (Other)
  Sender: FDA-Public Use
  Company Number: None

PATIENT
  Age: 69 Year
  Sex: Female
  Weight: 49.5 kg

DRUGS (1)
  1. EYLEA [Suspect]
     Active Substance: AFLIBERCEPT
     Indication: Retinal vein occlusion
     Dates: end: 20210927

REACTIONS (6)
  - Uveitis [None]
  - Injection related reaction [None]
  - Visual field defect [None]
  - Vitreous floaters [None]
  - Nausea [None]
  - Retinal vascular disorder [None]

NARRATIVE: CASE EVENT DATE: 20210927
